FAERS Safety Report 4733412-7 (Version None)
Quarter: 2005Q3

REPORT INFORMATION
  Report Type: 
  Country: None (occurrence: None)
  Receive Date: 20050801
  Receipt Date: 20050801
  Transmission Date: 20060218
  Serious: No
  Sender: FDA-Public Use
  Company Number: None

PATIENT

DRUGS (3)
  1. SPIRONOLACTONE [Suspect]
  2. ACE INHIBITOR [Suspect]
  3. POTASSIUM CHLORIDE [Suspect]

REACTIONS (1)
  - HYPERKALAEMIA [None]
